FAERS Safety Report 5841376-8 (Version None)
Quarter: 2008Q3

REPORT INFORMATION
  Report Type: 
  Country: None (occurrence: None)
  Receive Date: 20080812
  Receipt Date: 20080729
  Transmission Date: 20090109
  Serious: Yes (Hospitalization)
  Sender: FDA-Public Use
  Company Number: US-KINGPHARMUSA00001-K200800884

PATIENT

DRUGS (14)
  1. CORGARD [Suspect]
     Indication: HYPERTENSION
     Dosage: 40 MG, QD
     Route: 048
     Dates: start: 20070101, end: 20080615
  2. CORGARD [Suspect]
     Dosage: 80 MG, QD
     Route: 048
     Dates: start: 20080616, end: 20080620
  3. CORGARD [Suspect]
     Dosage: 40 MG, QD
     Route: 048
     Dates: start: 20080620, end: 20080625
  4. CORDARONE [Suspect]
     Indication: ATRIAL FIBRILLATION
     Dosage: 200 MG, 5 PER WEEK
     Route: 048
     Dates: start: 20080618, end: 20080625
  5. CORDARONE [Suspect]
     Dosage: 100 MG, QD
     Dates: start: 20080625, end: 20080627
  6. CORDARONE [Suspect]
     Dosage: 200 MG, QD
     Dates: start: 20080702, end: 20080703
  7. KARDEGIC                           /00002703/ [Concomitant]
  8. CORVASAL                           /00547101/ [Concomitant]
  9. TRIATEC                            /00885601/ [Concomitant]
  10. AMLOR [Concomitant]
  11. NITROGLYCERIN [Concomitant]
     Dosage: UNK, QD
  12. NITROGLYCERIN [Concomitant]
     Dosage: 10 MG, UNK
     Dates: start: 20080616
  13. INIPOMP                            /01263201/ [Concomitant]
  14. MOVICOL                            /01053601/ [Concomitant]

REACTIONS (9)
  - ATRIAL FIBRILLATION [None]
  - ATRIOVENTRICULAR BLOCK FIRST DEGREE [None]
  - ATRIOVENTRICULAR BLOCK SECOND DEGREE [None]
  - CHEST PAIN [None]
  - DRUG INTERACTION [None]
  - MALAISE [None]
  - PALPITATIONS [None]
  - SINOATRIAL BLOCK [None]
  - SINUS BRADYCARDIA [None]
